FAERS Safety Report 25746941 (Version 1)
Quarter: 2025Q3

REPORT INFORMATION
  Report Type: Spontaneous
  Country: EU (occurrence: EU)
  Receive Date: 20250901
  Receipt Date: 20250901
  Transmission Date: 20251020
  Serious: Yes (Life-Threatening, Hospitalization, Other)
  Sender: KYOWA
  Company Number: EU-PEI-202500018560

PATIENT

DRUGS (2)
  1. POTELIGEO [Suspect]
     Active Substance: MOGAMULIZUMAB-KPKC
     Indication: Cutaneous T-cell lymphoma
     Route: 065
     Dates: start: 20250114, end: 20250526
  2. POTELIGEO [Suspect]
     Active Substance: MOGAMULIZUMAB-KPKC
     Indication: Hepatosplenic T-cell lymphoma

REACTIONS (3)
  - Cardiac failure [Recovered/Resolved]
  - Cardiogenic shock [Recovered/Resolved]
  - Myocarditis [Recovered/Resolved]
